FAERS Safety Report 17412338 (Version 1)
Quarter: 2020Q1

REPORT INFORMATION
  Report Type: Spontaneous
  Country: US (occurrence: US)
  Receive Date: 20200212
  Receipt Date: 20200212
  Transmission Date: 20200409
  Serious: Yes (Life-Threatening, Hospitalization)
  Sender: FDA-Public Use
  Company Number: None

PATIENT
  Age: 53 Year
  Sex: Female
  Weight: 85.3 kg

DRUGS (2)
  1. ROCURONIUM [Suspect]
     Active Substance: ROCURONIUM BROMIDE
     Indication: ENDOTRACHEAL INTUBATION
     Dosage: ?          OTHER FREQUENCY:ONCE;?
     Route: 040
     Dates: start: 20200109, end: 20200109
  2. ETOMIDATE 20 MG [Concomitant]
     Dates: start: 20200109, end: 20200109

REACTIONS (5)
  - Retching [None]
  - Vocal cord disorder [None]
  - Respiratory arrest [None]
  - Drug ineffective [None]
  - Paralysis [None]

NARRATIVE: CASE EVENT DATE: 20200109
